FAERS Safety Report 5537893-0 (Version None)
Quarter: 2007Q4

REPORT INFORMATION
  Report Type: 
  Country: None (occurrence: None)
  Receive Date: 20071207
  Receipt Date: 20071126
  Transmission Date: 20080405
  Serious: Yes (Other)
  Sender: FDA-Public Use
  Company Number: US-PFIZER INC-2007087848

PATIENT
  Sex: Female
  Weight: 118.18 kg

DRUGS (10)
  1. CHANTIX [Suspect]
     Indication: SMOKING CESSATION THERAPY
     Dosage: FREQ:DAILY
  2. DUONEB [Concomitant]
  3. PREMPRO [Concomitant]
  4. ACCUPRIL [Concomitant]
  5. VITAMIN CAP [Concomitant]
  6. HYDROCHLOROTHIAZIDE [Concomitant]
  7. MONTELUKAST SODIUM [Concomitant]
  8. COMBIVENT [Concomitant]
  9. ALBUTEROL [Concomitant]
  10. CLARITIN [Concomitant]

REACTIONS (8)
  - ABDOMINAL PAIN [None]
  - ABDOMINAL SYMPTOM [None]
  - ABNORMAL DREAMS [None]
  - CONSTIPATION [None]
  - FOOD POISONING [None]
  - GASTROINTESTINAL DISORDER [None]
  - INSOMNIA [None]
  - NAUSEA [None]
